FAERS Safety Report 21879970 (Version 1)
Quarter: 2023Q1

REPORT INFORMATION
  Report Type: Spontaneous
  Country: US (occurrence: None)
  Receive Date: 20230117
  Receipt Date: 20230117
  Transmission Date: 20230418
  Serious: Yes (Disabling, Other)
  Sender: FDA-Public Use
  Company Number: None

PATIENT
  Age: 34 Year
  Sex: Male
  Weight: 108 kg

DRUGS (4)
  1. PALIPERIDONE [Suspect]
     Active Substance: PALIPERIDONE
     Indication: Abnormal behaviour
     Dosage: OTHER QUANTITY : 1 TABLET(S);?FREQUENCY : DAILY;?
     Route: 048
     Dates: start: 20210701, end: 20220110
  2. PALIPERIDONE [Suspect]
     Active Substance: PALIPERIDONE
     Indication: Irritability
  3. BUSPIRONE [Concomitant]
     Active Substance: BUSPIRONE HYDROCHLORIDE
  4. Amlodipene [Concomitant]

REACTIONS (5)
  - Depression [None]
  - Anhedonia [None]
  - Male sexual dysfunction [None]
  - Loss of libido [None]
  - Pain [None]

NARRATIVE: CASE EVENT DATE: 20211210
